FAERS Safety Report 10462732 (Version 8)
Quarter: 2016Q3

REPORT INFORMATION
  Report Type: Report from Study
  Country: ZA (occurrence: ZA)
  Receive Date: 20140918
  Receipt Date: 20160718
  Transmission Date: 20161109
  Serious: Yes (Hospitalization)
  Sender: FDA-Public Use
  Company Number: ZA-NOVOPROD-419982

PATIENT
  Age: 65 Year
  Sex: Male
  Weight: 115.5 kg

DRUGS (10)
  1. PLENISH-K [Concomitant]
     Dosage: 600, MG, UNK
  2. LANTUS [Suspect]
     Active Substance: INSULIN GLARGINE
     Indication: TYPE 2 DIABETES MELLITUS
     Dosage: 90 U, QD
     Route: 058
     Dates: start: 20140617
  3. LANTUS [Suspect]
     Active Substance: INSULIN GLARGINE
     Dosage: DOSE DECREASED
     Route: 058
     Dates: start: 20140819
  4. NOVORAPID [Suspect]
     Active Substance: INSULIN ASPART
     Dosage: DOSE DECREASED
     Route: 058
     Dates: start: 20140819
  5. ZANIDIP [Concomitant]
     Active Substance: LERCANIDIPINE HYDROCHLORIDE
     Dosage: UNK
  6. WARFARIN [Concomitant]
     Active Substance: WARFARIN
     Dosage: 5, MG, UNK
  7. SPIRACTIN                          /00006201/ [Concomitant]
     Dosage: 25, MG, UNK
  8. CARVEDILOL. [Concomitant]
     Active Substance: CARVEDILOL
     Dosage: UNK
     Dates: start: 201405, end: 20151104
  9. NOVORAPID [Suspect]
     Active Substance: INSULIN ASPART
     Indication: TYPE 2 DIABETES MELLITUS
     Dosage: 150 U, QD
     Route: 058
     Dates: start: 20140617
  10. AMLATE [Concomitant]
     Dosage: 5 MG, QD

REACTIONS (3)
  - Toxic goitre [Not Recovered/Not Resolved]
  - Cardiac failure congestive [Recovered/Resolved]
  - Atrial fibrillation [Not Recovered/Not Resolved]

NARRATIVE: CASE EVENT DATE: 20140801
